FAERS Safety Report 6137192-2 (Version None)
Quarter: 2009Q1

REPORT INFORMATION
  Report Type: 
  Country: None (occurrence: None)
  Receive Date: 20090326
  Receipt Date: 20090326
  Transmission Date: 20090719
  Serious: Yes (Disabling, Other)
  Sender: FDA-Public Use
  Company Number: None

PATIENT
  Age: 51 Year
  Sex: Female
  Weight: 70.3075 kg

DRUGS (1)
  1. LEVAQUIN [Suspect]
     Indication: EAR INFECTION
     Dosage: 500 MG DAILY PO
     Route: 048
     Dates: start: 20090306, end: 20090308

REACTIONS (9)
  - ANOREXIA [None]
  - ARTHRALGIA [None]
  - CHILLS [None]
  - FATIGUE [None]
  - FIBROMYALGIA [None]
  - HOT FLUSH [None]
  - IMPAIRED WORK ABILITY [None]
  - INSOMNIA [None]
  - WEIGHT DECREASED [None]
